FAERS Safety Report 5477770-7 (Version None)
Quarter: 2007Q3

REPORT INFORMATION
  Report Type: 
  Country: None (occurrence: None)
  Receive Date: 20070905
  Receipt Date: 20061017
  Transmission Date: 20080115
  Serious: Yes (Hospitalization)
  Sender: FDA-Public Use
  Company Number: WAES 0610USA11203

PATIENT
  Sex: Female

DRUGS (2)
  1. MAXALT [Suspect]
     Indication: VASCULAR HEADACHE
     Dosage: 10 MG/ PO
     Route: 048
  2. ADDERALL TABLETS [Concomitant]

REACTIONS (2)
  - ADVERSE EVENT [None]
  - OVERDOSE [None]
